FAERS Safety Report 6828698-9 (Version None)
Quarter: 2010Q3

REPORT INFORMATION
  Report Type: 
  Country: None (occurrence: None)
  Receive Date: 20100709
  Receipt Date: 20070217
  Transmission Date: 20110219
  Serious: No
  Sender: FDA-Public Use
  Company Number: US-PFIZER INC-2007014093

PATIENT
  Sex: Female
  Weight: 72.57 kg

DRUGS (4)
  1. CHANTIX [Interacting]
     Indication: SMOKING CESSATION THERAPY
     Route: 048
     Dates: start: 20070217
  2. COFFEE [Suspect]
  3. ZOLOFT [Concomitant]
  4. DRUG, UNSPECIFIED [Concomitant]
     Indication: VERTIGO

REACTIONS (3)
  - DRUG INTERACTION [None]
  - FEELING JITTERY [None]
  - HEART RATE INCREASED [None]
